FAERS Safety Report 22521184 (Version 2)
Quarter: 2023Q2

REPORT INFORMATION
  Report Type: Spontaneous
  Country: ES (occurrence: ES)
  Receive Date: 20230605
  Receipt Date: 20230621
  Transmission Date: 20230721
  Serious: Yes (Other)
  Sender: FDA-Public Use
  Company Number: ES-EXELTIS PHARMACEUTICAL HOLDING, S.L.-2305ES03463

PATIENT
  Age: 37 Year
  Sex: Female

DRUGS (1)
  1. DROSPIRENONE [Suspect]
     Active Substance: DROSPIRENONE
     Indication: Menstrual disorder
     Dosage: 4 MILLIGRAM, QD
     Route: 048
     Dates: start: 202203, end: 202303

REACTIONS (2)
  - Endometrial adenocarcinoma [Recovered/Resolved]
  - Product use in unapproved indication [Unknown]

NARRATIVE: CASE EVENT DATE: 20230101
